FAERS Safety Report 8086984-1 (Version None)
Quarter: 2012Q1

REPORT INFORMATION
  Report Type: 
  Country: None (occurrence: None)
  Receive Date: 20120128
  Receipt Date: 20110520
  Transmission Date: 20120608
  Serious: No
  Sender: FDA-Public Use
  Company Number: US-ABBOTT-11P-163-0727439-00

PATIENT
  Age: 54 Year
  Sex: Female

DRUGS (5)
  1. ATENOLOL [Concomitant]
     Indication: HYPERTENSION
     Route: 048
     Dates: start: 20080101
  2. HUMIRA [Suspect]
     Indication: PSORIASIS
     Dates: start: 20110101
  3. LEVOXYL [Concomitant]
     Indication: THYROID DISORDER
     Dates: start: 19960101
  4. SINGULAIR [Concomitant]
     Indication: ASTHMA
     Route: 048
  5. FLUOXETINE [Concomitant]
     Indication: DEPRESSION
     Route: 048

REACTIONS (2)
  - INJECTION SITE PRURITUS [None]
  - INJECTION SITE ERYTHEMA [None]
